FAERS Safety Report 5639541-8 (Version None)
Quarter: 2008Q1

REPORT INFORMATION
  Report Type: 
  Country: None (occurrence: None)
  Receive Date: 20080226
  Receipt Date: 20080220
  Transmission Date: 20080703
  Serious: Yes (Disabling)
  Sender: FDA-Public Use
  Company Number: US-MERCK-0802USA04699

PATIENT
  Age: 82 Year
  Sex: Male

DRUGS (11)
  1. JANUVIA [Suspect]
     Indication: TYPE 1 DIABETES MELLITUS
     Route: 048
     Dates: start: 20070129
  2. INSULIN [Concomitant]
     Route: 065
  3. ZOCOR [Suspect]
     Route: 048
     Dates: end: 20070101
  4. TRICOR [Concomitant]
     Route: 065
     Dates: end: 20070101
  5. LASIX [Concomitant]
     Route: 065
  6. TERAZOSIN HYDROCHLORIDE [Concomitant]
     Route: 065
  7. RANITIDINE [Concomitant]
     Route: 065
  8. FOLIC ACID [Concomitant]
     Route: 065
  9. DIGOXIN [Concomitant]
     Route: 065
  10. AVAPRO [Concomitant]
     Route: 065
  11. METOPROLOL [Concomitant]
     Route: 065

REACTIONS (3)
  - AUTOIMMUNE HEPATITIS [None]
  - BILIARY CIRRHOSIS [None]
  - DRUG ADMINISTRATION ERROR [None]
